FAERS Safety Report 6282799-5 (Version None)
Quarter: 2009Q3

REPORT INFORMATION
  Report Type: 
  Country: None (occurrence: None)
  Receive Date: 20090724
  Receipt Date: 20090713
  Transmission Date: 20100115
  Serious: Yes (Hospitalization, Other)
  Sender: FDA-Public Use
  Company Number: DE-PFIZER INC-2009220274

PATIENT
  Age: 53 Year

DRUGS (6)
  1. LYRICA [Suspect]
     Indication: TRIGEMINAL NEURALGIA
     Dosage: 25 MG, 2X/DAY
     Route: 048
     Dates: start: 20080201, end: 20080801
  2. LYRICA [Suspect]
     Dosage: 50 MG, 2X/DAY
     Route: 048
     Dates: start: 20080801, end: 20080918
  3. LYRICA [Suspect]
     Dosage: 100 MG, 2X/DAY
     Route: 048
     Dates: start: 20080918, end: 20090401
  4. DOXEPIN [Concomitant]
     Indication: AFFECTIVE DISORDER
     Dosage: 50 MG, 1X/DAY
     Dates: start: 20080918
  5. ACETAMINOPHEN [Concomitant]
     Indication: PAIN
     Dosage: 150 MG, 1X/DAY
  6. TRAMADOL HCL [Concomitant]
     Dosage: 50 MG, 3X/DAY
     Dates: start: 20061130

REACTIONS (3)
  - DRUG INEFFECTIVE [None]
  - GRAND MAL CONVULSION [None]
  - WITHDRAWAL SYNDROME [None]
